FAERS Safety Report 8592747-0 (Version None)
Quarter: 2012Q3

REPORT INFORMATION
  Report Type: 
  Country: None (occurrence: None)
  Receive Date: 20120814
  Receipt Date: 20120807
  Transmission Date: 20120928
  Serious: Yes (Hospitalization)
  Sender: FDA-Public Use
  Company Number: JP-PFIZER INC-2012174295

PATIENT
  Age: 49 Year
  Sex: Female
  Weight: 53.6 kg

DRUGS (8)
  1. LANSOPRAZOLE [Concomitant]
     Indication: METASTASES TO STOMACH
     Dosage: 30 MG, 1X/DAY
     Route: 048
     Dates: start: 20120614, end: 20120725
  2. FOLIC ACID [Concomitant]
     Indication: PROPHYLAXIS
     Dosage: 0.5 MG, 1X/DAY
     Route: 048
     Dates: start: 20120620, end: 20120804
  3. CRIZOTINIB [Suspect]
     Indication: LUNG NEOPLASM MALIGNANT
     Dosage: 500 MG, 1X/DAY
     Route: 048
     Dates: start: 20120709, end: 20120710
  4. RIKKUNSHINTO [Concomitant]
     Indication: NAUSEA
     Dosage: 1 DF, 3X/DAY
     Route: 048
     Dates: start: 20120620, end: 20120626
  5. PREDNISOLONE [Concomitant]
     Indication: NAUSEA
     Dosage: 20 MG, 1X/DAY
     Route: 048
     Dates: start: 20120705, end: 20120712
  6. MAGNESIUM OXIDE [Concomitant]
     Indication: CONSTIPATION
     Dosage: 330 MG, 3X/DAY
     Route: 048
     Dates: start: 20120708
  7. MOTILIUM [Concomitant]
     Indication: NAUSEA
     Dosage: 10 MG, 3X/DAY
     Route: 048
     Dates: start: 20120614, end: 20120702
  8. PRIMPERAN TAB [Concomitant]
     Indication: NAUSEA
     Dosage: 5 MG, 1X/DAY
     Route: 048
     Dates: start: 20120703

REACTIONS (1)
  - COLITIS ISCHAEMIC [None]
